FAERS Safety Report 8492252-6 (Version None)
Quarter: 2012Q3

REPORT INFORMATION
  Report Type: 
  Country: None (occurrence: None)
  Receive Date: 20120706
  Receipt Date: 20110907
  Transmission Date: 20120928
  Serious: Yes (Other)
  Sender: FDA-Public Use
  Company Number: DE-UCBSA-530#6#2007-00034

PATIENT
  Age: 68 Year
  Sex: Male
  Weight: 94 kg

DRUGS (5)
  1. PARKINSAN [Concomitant]
     Indication: PARKINSON'S DISEASE
     Dates: start: 20020225, end: 20070205
  2. NEUPRO [Suspect]
     Indication: PARKINSON'S DISEASE
     Route: 062
     Dates: start: 20070206, end: 20070215
  3. SELEGILIN [Concomitant]
     Indication: PARKINSON'S DISEASE
     Dates: start: 20031113, end: 20070205
  4. LORMETAZEPAM [Concomitant]
     Indication: INSOMNIA
     Route: 048
     Dates: start: 20040303
  5. CARBIDOPA AND LEVODOPA [Concomitant]
     Indication: PARKINSON'S DISEASE
     Dosage: OTHER 1- 1/2- 1/2- 1/2
     Dates: start: 20010703, end: 20070205

REACTIONS (1)
  - PLEURAL EFFUSION [None]
